FAERS Safety Report 5487673-X (Version None)
Quarter: 2007Q4

REPORT INFORMATION
  Report Type: 
  Country: None (occurrence: None)
  Receive Date: 20071017
  Receipt Date: 20071009
  Transmission Date: 20080405
  Serious: Yes (Other)
  Sender: FDA-Public Use
  Company Number: PHBS2007NO06683

PATIENT
  Age: 69 Year
  Weight: 70 kg

DRUGS (9)
  1. ZOMETA [Suspect]
     Indication: METASTASES TO BONE
     Dosage: 4 MG, UNK
     Route: 042
     Dates: start: 20060915
  2. PREDNISOLONE [Concomitant]
     Dosage: 20 MG/DAY
     Dates: start: 20060919
  3. OXYCONTIN [Concomitant]
     Dosage: 20 MG, BID
     Dates: start: 20060601
  4. ACETAMINOPHEN [Concomitant]
     Dosage: 1 G, BID
     Dates: start: 20060601
  5. DUPHALAC [Concomitant]
     Dosage: 5 ML, BID
     Dates: start: 20060601
  6. OXYNORM [Concomitant]
     Dosage: 20 MG, QD
     Dates: start: 20060912
  7. NEXIUM [Concomitant]
     Dosage: 20 MG, QD
     Dates: start: 20060912
  8. ZOLADEX [Concomitant]
     Dosage: EVERY 3 MONTHS
     Dates: end: 20061004
  9. TAXOTERE [Concomitant]
     Dosage: 55 MG, QW
     Dates: start: 20060928

REACTIONS (2)
  - DIPLOPIA [None]
  - VITH NERVE PARALYSIS [None]
